FAERS Safety Report 10024240 (Version 1)
Quarter: 2014Q1

REPORT INFORMATION
  Report Type: Spontaneous
  Country: US (occurrence: None)
  Receive Date: 20140318
  Receipt Date: 20140318
  Transmission Date: 20141002
  Serious: Yes (Life-Threatening, Hospitalization)
  Sender: FDA-Public Use
  Company Number: None

PATIENT
  Age: 27 Year
  Sex: Male
  Weight: 90.1 kg

DRUGS (2)
  1. AMOXICILLIN/CLAVULANATE [Suspect]
     Indication: CELLULITIS
     Route: 048
     Dates: start: 20140311, end: 20140311
  2. SULFAMETHOXAZOLE/TRIMETHOPRIM [Suspect]
     Indication: CELLULITIS
     Route: 048
     Dates: start: 20140311, end: 20140311

REACTIONS (1)
  - Anaphylactic reaction [None]
